FAERS Safety Report 7623372-3 (Version None)
Quarter: 2011Q3

REPORT INFORMATION
  Report Type: 
  Country: None (occurrence: None)
  Receive Date: 20110720
  Receipt Date: 20110705
  Transmission Date: 20111222
  Serious: Yes (Hospitalization)
  Sender: FDA-Public Use
  Company Number: KR-SANOFI-AVENTIS-2011SA044095

PATIENT
  Age: 85 Year
  Sex: Male
  Weight: 72 kg

DRUGS (12)
  1. WARFARIN SODIUM [Concomitant]
  2. DIGOXIN [Concomitant]
  3. FUROSEMIDE [Concomitant]
  4. DRONEDARONE HCL [Suspect]
     Route: 048
  5. BISOPROLOL [Concomitant]
  6. ATORVASTATIN [Concomitant]
  7. REPAGLINIDE [Concomitant]
  8. INSULIN [Concomitant]
  9. VALSARTAN [Concomitant]
  10. DRONEDARONE HCL [Suspect]
     Route: 048
     Dates: end: 20110513
  11. DRONEDARONE HCL [Suspect]
     Indication: ATRIAL FIBRILLATION
     Route: 048
     Dates: start: 20110103, end: 20110106
  12. DILTIAZEM [Concomitant]

REACTIONS (3)
  - PNEUMONIA [None]
  - HEPATIC CONGESTION [None]
  - RENAL FAILURE CHRONIC [None]
